FAERS Safety Report 24671370 (Version 2)
Quarter: 2025Q1

REPORT INFORMATION
  Report Type: Report from Study
  Country: CA (occurrence: CA)
  Receive Date: 20241127
  Receipt Date: 20250115
  Transmission Date: 20250408
  Serious: Yes (Hospitalization)
  Sender: ABBVIE
  Company Number: CA-ABBVIE-6023182

PATIENT
  Age: 37 Year
  Sex: Female

DRUGS (1)
  1. RINVOQ [Suspect]
     Active Substance: UPADACITINIB
     Indication: Crohn^s disease
     Dosage: FORM STRENGTH: 30 MILLIGRAM
     Route: 048
     Dates: start: 20230801

REACTIONS (4)
  - Respiratory failure [Recovered/Resolved]
  - Febrile neutropenia [Recovered/Resolved]
  - Nephrolithiasis [Recovered/Resolved]
  - Pneumonia [Recovered/Resolved]
